FAERS Safety Report 4352208-1 (Version None)
Quarter: 2004Q2

REPORT INFORMATION
  Report Type: 
  Country: None (occurrence: None)
  Receive Date: 20040428
  Receipt Date: 20040419
  Transmission Date: 20050107
  Serious: Yes (Other)
  Sender: FDA-Public Use
  Company Number: 2004210216JP

PATIENT
  Age: 74 Year
  Sex: Male

DRUGS (4)
  1. AZULFIDINE EN-TABS [Suspect]
     Indication: MUSCULOSKELETAL PAIN
     Dosage: SEE IMAGE
     Route: 048
     Dates: start: 20040410, end: 20040414
  2. AZULFIDINE EN-TABS [Suspect]
     Indication: MUSCULOSKELETAL PAIN
     Dosage: SEE IMAGE
     Route: 048
     Dates: start: 20040201
  3. PREDNISOLONE [Suspect]
     Dosage: ORAL
     Route: 048
  4. LOXONIN (LOXOPROFEN SODIUM) [Concomitant]

REACTIONS (2)
  - HAEMOPTYSIS [None]
  - INTERSTITIAL LUNG DISEASE [None]
